FAERS Safety Report 6862455-2 (Version None)
Quarter: 2010Q3

REPORT INFORMATION
  Report Type: 
  Country: None (occurrence: None)
  Receive Date: 20100721
  Receipt Date: 20100619
  Transmission Date: 20110219
  Serious: Yes (Death)
  Sender: FDA-Public Use
  Company Number: BR-B.I. PHARMACEUTICALS,INC./RIDGEFIELD-2010-BR-01440BR

PATIENT
  Sex: Male

DRUGS (1)
  1. SECOTEX ADV [Suspect]

REACTIONS (1)
  - DEATH [None]
